FAERS Safety Report 6611276-4 (Version None)
Quarter: 2010Q1

REPORT INFORMATION
  Report Type: 
  Country: None (occurrence: None)
  Receive Date: 20100301
  Receipt Date: 20100301
  Transmission Date: 20100710
  Serious: Yes (Other)
  Sender: FDA-Public Use
  Company Number: None

PATIENT
  Sex: Male
  Weight: 95.2554 kg

DRUGS (7)
  1. MULTAQ [Suspect]
     Indication: ATRIAL FIBRILLATION
     Dosage: 400MG BID PO
     Route: 048
     Dates: start: 20100208, end: 20100226
  2. MULTAQ [Suspect]
     Indication: CORONARY ARTERY DISEASE
     Dosage: 400MG BID PO
     Route: 048
     Dates: start: 20100208, end: 20100226
  3. MULTAQ [Suspect]
     Indication: VENTRICULAR EXTRASYSTOLES
     Dosage: 400MG BID PO
     Route: 048
     Dates: start: 20100208, end: 20100226
  4. COUMADIN [Concomitant]
  5. DIOVAN [Concomitant]
  6. LOVAZA [Concomitant]
  7. ASPIRIN [Concomitant]

REACTIONS (2)
  - IMPAIRED DRIVING ABILITY [None]
  - PHOTOPHOBIA [None]
